FAERS Safety Report 8432347-6 (Version None)
Quarter: 2012Q2

REPORT INFORMATION
  Report Type: 
  Country: None (occurrence: None)
  Receive Date: 20120613
  Receipt Date: 20120611
  Transmission Date: 20120825
  Serious: Yes (Hospitalization, Other)
  Sender: FDA-Public Use
  Company Number: PHEH2011US01243

PATIENT
  Sex: Male
  Weight: 156 kg

DRUGS (3)
  1. EXJADE [Suspect]
     Indication: SICKLE CELL ANAEMIA
     Dosage: 2000 MG, DAILY
     Route: 048
     Dates: start: 20100104
  2. EXJADE [Suspect]
     Indication: IRON OVERLOAD
  3. EXJADE [Suspect]
     Indication: IRON METABOLISM DISORDER

REACTIONS (8)
  - ATELECTASIS [None]
  - SPEECH DISORDER [None]
  - SICKLE CELL ANAEMIA [None]
  - DIZZINESS [None]
  - PNEUMONIA [None]
  - PLEURAL EFFUSION [None]
  - COMPLEX PARTIAL SEIZURES [None]
  - MUSCULAR WEAKNESS [None]
